FAERS Safety Report 14944818 (Version 1)
Quarter: 2018Q2

REPORT INFORMATION
  Report Type: Report from Study
  Country: GB (occurrence: GB)
  Receive Date: 20180529
  Receipt Date: 20180529
  Transmission Date: 20180711
  Serious: Yes (Death, Other)
  Sender: FDA-Public Use
  Company Number: GB-ROCHE-2126479

PATIENT

DRUGS (6)
  1. OXALIPLATIN. [Suspect]
     Active Substance: OXALIPLATIN
     Indication: COLORECTAL CANCER
     Dosage: 85 MG/M2 WAS GIVEN ON DAY ONE OVER 2 H EVERY 2 WEEKS WHEN GIVEN AS PART OF FOLFOX THERAPY, WHILE GIV
     Route: 042
  2. CAPECITABINE. [Suspect]
     Active Substance: CAPECITABINE
     Indication: COLORECTAL CANCER
     Dosage: THE FIRST 14 DAYS OF EACH 21 DAY CYCLE
     Route: 048
  3. FLUOROURACIL. [Suspect]
     Active Substance: FLUOROURACIL
     Dosage: OVER 46 HOURS
     Route: 041
  4. FLUOROURACIL. [Suspect]
     Active Substance: FLUOROURACIL
     Indication: COLORECTAL CANCER
     Dosage: OVER 5 MINUTES
     Route: 040
  5. FOLINIC ACID [Suspect]
     Active Substance: LEUCOVORIN
     Indication: COLORECTAL CANCER
     Route: 065
  6. LEVOFOLINIC ACID [Suspect]
     Active Substance: LEVOLEUCOVORIN
     Indication: COLORECTAL CANCER
     Route: 065

REACTIONS (101)
  - Mucosal inflammation [Fatal]
  - Portal vein thrombosis [Fatal]
  - Pneumonia aspiration [Fatal]
  - Hypokalaemia [Unknown]
  - Constipation [Unknown]
  - Palmar-plantar erythrodysaesthesia syndrome [Unknown]
  - Neuropathy peripheral [Unknown]
  - International normalised ratio abnormal [Unknown]
  - Laryngeal nerve dysfunction [Unknown]
  - Muscular weakness [Unknown]
  - Gastrointestinal obstruction [Unknown]
  - Blood disorder [Unknown]
  - Ischaemia [Unknown]
  - Device related thrombosis [Unknown]
  - Anaemia [Unknown]
  - Cough [Unknown]
  - Flatulence [Unknown]
  - Mental status changes [Unknown]
  - Type 2 diabetes mellitus [Fatal]
  - Febrile neutropenia [Fatal]
  - Perforation [Fatal]
  - Multiple organ dysfunction syndrome [Fatal]
  - Intestinal ischaemia [Fatal]
  - Dyspnoea [Unknown]
  - Angiopathy [Unknown]
  - Alanine aminotransferase increased [Unknown]
  - Dermatitis [Unknown]
  - Mood altered [Unknown]
  - Personality disorder [Unknown]
  - Phlebitis [Unknown]
  - Decreased appetite [Unknown]
  - Myocardial ischaemia [Fatal]
  - Cardiac arrest [Fatal]
  - Haemorrhage intracranial [Fatal]
  - Cardio-respiratory arrest [Fatal]
  - Infection [Unknown]
  - Dizziness [Unknown]
  - Fracture [Unknown]
  - Gastrointestinal disorder [Unknown]
  - Hyperglycaemia [Unknown]
  - Hypoglycaemia [Unknown]
  - White blood cell count abnormal [Unknown]
  - Pneumonitis [Unknown]
  - Arrhythmia supraventricular [Unknown]
  - Dysphonia [Unknown]
  - Vomiting [Unknown]
  - Lacrimation increased [Unknown]
  - Neutropenic sepsis [Fatal]
  - Neutropenia [Fatal]
  - Ascites [Unknown]
  - Enteritis [Unknown]
  - Pyrexia [Unknown]
  - Gastritis [Unknown]
  - Hypophosphataemia [Unknown]
  - Renal failure [Unknown]
  - Dysgeusia [Unknown]
  - Diarrhoea [Fatal]
  - Deep vein thrombosis [Fatal]
  - Arrhythmia [Fatal]
  - Colitis [Fatal]
  - Hypocalcaemia [Unknown]
  - Joint effusion [Unknown]
  - Blood bilirubin increased [Unknown]
  - Hypoalbuminaemia [Unknown]
  - Psychotic disorder [Unknown]
  - Tinnitus [Unknown]
  - Weight decreased [Unknown]
  - Cardiac disorder [Unknown]
  - Nausea [Unknown]
  - Pain [Unknown]
  - Rash [Unknown]
  - Thrombosis [Fatal]
  - Embolism [Fatal]
  - Septic shock [Fatal]
  - Pulmonary embolism [Fatal]
  - Aortic thrombosis [Fatal]
  - Thrombocytopenia [Fatal]
  - Fatigue [Unknown]
  - Lung disorder [Unknown]
  - Cholecystitis [Unknown]
  - Blood creatinine increased [Unknown]
  - Dehydration [Unknown]
  - Localised oedema [Unknown]
  - Oedema genital [Unknown]
  - Gait disturbance [Unknown]
  - Dyspepsia [Unknown]
  - Arthropathy [Unknown]
  - Neurological symptom [Unknown]
  - Ocular discomfort [Unknown]
  - Renal disorder [Unknown]
  - Syncope [Unknown]
  - Myocardial infarction [Fatal]
  - Death [Fatal]
  - Peripheral sensory neuropathy [Unknown]
  - Bronchospasm [Unknown]
  - Laryngeal oedema [Unknown]
  - Gastrointestinal haemorrhage [Unknown]
  - Hyperuricaemia [Unknown]
  - Hyponatraemia [Unknown]
  - Presyncope [Unknown]
  - Wound complication [Unknown]
